FAERS Safety Report 7907258-2 (Version None)
Quarter: 2011Q4

REPORT INFORMATION
  Report Type: 
  Country: None (occurrence: None)
  Receive Date: 20111110
  Receipt Date: 20111107
  Transmission Date: 20120403
  Serious: Yes (Hospitalization)
  Sender: FDA-Public Use
  Company Number: US-GLAXOSMITHKLINE-A0796416A

PATIENT
  Sex: Male
  Weight: 99.1 kg

DRUGS (12)
  1. ALTACE [Concomitant]
  2. FLOVENT [Concomitant]
  3. GLYBURIDE [Concomitant]
  4. ADVAIR DISKUS 100/50 [Concomitant]
  5. VIAGRA [Concomitant]
  6. SEREVENT [Concomitant]
  7. ALBUTEROL [Concomitant]
  8. LIPITOR [Concomitant]
  9. VIOXX [Concomitant]
  10. PRILOSEC [Concomitant]
  11. AVANDIA [Suspect]
     Indication: TYPE 2 DIABETES MELLITUS
     Dosage: 8MG PER DAY
     Route: 048
     Dates: start: 20000101
  12. DIOVAN [Concomitant]

REACTIONS (3)
  - MYOCARDIAL INFARCTION [None]
  - HAEMORRHAGIC DISORDER [None]
  - CORONARY ARTERY DISEASE [None]
